FAERS Safety Report 13668127 (Version 1)
Quarter: 2017Q2

REPORT INFORMATION
  Report Type: Spontaneous
  Country: US (occurrence: US)
  Receive Date: 20170619
  Receipt Date: 20170619
  Transmission Date: 20170830
  Serious: Yes (Death)
  Sender: FDA-Public Use
  Company Number: None

PATIENT
  Age: 78 Year
  Sex: Female
  Weight: 118.7 kg

DRUGS (1)
  1. ALLOPURINOL. [Suspect]
     Active Substance: ALLOPURINOL
     Indication: GOUT
     Route: 048
     Dates: start: 20170524, end: 20170609

REACTIONS (6)
  - Lactic acidosis [None]
  - Toxic epidermal necrolysis [None]
  - Metabolic disorder [None]
  - Stevens-Johnson syndrome [None]
  - Headache [None]
  - Dialysis [None]

NARRATIVE: CASE EVENT DATE: 20170605
